FAERS Safety Report 7325850-3 (Version None)
Quarter: 2011Q1

REPORT INFORMATION
  Report Type: 
  Country: None (occurrence: None)
  Receive Date: 20110218
  Receipt Date: 20110209
  Transmission Date: 20110831
  Serious: Yes (Other)
  Sender: FDA-Public Use
  Company Number: 2011SP006819

PATIENT
  Age: 34 Year
  Sex: Male

DRUGS (6)
  1. MIRTAZAPINE [Suspect]
     Indication: DEPRESSION
     Dosage: 15 MG; QD; PO
     Route: 048
     Dates: start: 20100601, end: 20100715
  2. ETHYL LOFLAZEPATE [Concomitant]
  3. MEILAX [Concomitant]
  4. ETIZOLAM [Concomitant]
  5. PAROXETINE HYDROCHLORIDE [Concomitant]
  6. ZOLOFT [Concomitant]

REACTIONS (3)
  - WEIGHT INCREASED [None]
  - ALCOHOL USE [None]
  - HEPATIC STEATOSIS [None]
